FAERS Safety Report 4585583-3 (Version None)
Quarter: 2005Q1

REPORT INFORMATION
  Report Type: 
  Country: None (occurrence: None)
  Receive Date: 20050214
  Receipt Date: 20041018
  Transmission Date: 20050727
  Serious: Yes (Death, Life-Threatening)
  Sender: FDA-Public Use
  Company Number: 05-099

PATIENT
  Age: 67 Year
  Sex: Male

DRUGS (19)
  1. DEXAMETHASONE [Suspect]
     Indication: MYELOMA RECURRENCE
     Dosage: 40 MG/DAY, ORAL
     Route: 048
     Dates: start: 20010907, end: 20010924
  2. GENASENSE [Suspect]
     Indication: MYELOMA RECURRENCE
     Dosage: 7 MG/KG/DAY, INTRAVENOUS
     Route: 042
     Dates: start: 20010904, end: 20010925
  3. OXYCODONE [Concomitant]
  4. ACETAMINOPHEN [Concomitant]
  5. PANTOPRAZOLE [Concomitant]
  6. ALLOPURINOL [Concomitant]
  7. TRIMETHOPRIM-SULFAMETHOXAZOLE [Concomitant]
  8. MAGNESUIM HYDROXIDE [Concomitant]
  9. EPOETIN ALFA [Concomitant]
  10. NYSTATIN [Concomitant]
  11. FLUCONAZOLE [Concomitant]
  12. MUPIROCIN [Concomitant]
  13. ACYCLOVIR [Concomitant]
  14. PHENYLEPHRINE NASAL SPRAY [Concomitant]
  15. ACETAMINOPHEN W/ CODEINE [Concomitant]
  16. PIPERACILLIN SODIUM [Concomitant]
  17. TAZOBACTAM SODIUM [Concomitant]
  18. FUROSEMIDE [Concomitant]
  19. VITAMIN K [Concomitant]

REACTIONS (3)
  - EPISTAXIS [None]
  - MALIGNANT NEOPLASM PROGRESSION [None]
  - MULTIPLE MYELOMA [None]
